FAERS Safety Report 19912223 (Version 1)
Quarter: 2021Q4

REPORT INFORMATION
  Report Type: Report from Study
  Country: GB (occurrence: GB)
  Receive Date: 20211004
  Receipt Date: 20211004
  Transmission Date: 20220303
  Serious: Yes (Other)
  Sender: FDA-Public Use
  Company Number: GB-SAMSUNG BIOEPIS-SB-2021-22507

PATIENT
  Age: 45 Year
  Sex: Male

DRUGS (3)
  1. NAPROXEN [Suspect]
     Active Substance: NAPROXEN
     Indication: Product used for unknown indication
     Dosage: UNKNOWN
     Route: 065
  2. ETANERCEPT [Suspect]
     Active Substance: ETANERCEPT
     Indication: Ankylosing spondylitis
     Dosage: 50 MILLIGRAM, QW
     Route: 058
     Dates: start: 20210810
  3. VITAMIN B12 [Concomitant]
     Active Substance: CYANOCOBALAMIN
     Indication: Product used for unknown indication
     Dosage: UNK, Q3MONTHS (ONCE EVERY THREE MONTHS)
     Route: 065

REACTIONS (9)
  - Ankylosing spondylitis [Not Recovered/Not Resolved]
  - Stress [Unknown]
  - Injection site pruritus [Unknown]
  - Injection site swelling [Unknown]
  - Abdominal discomfort [Unknown]
  - Fatigue [Not Recovered/Not Resolved]
  - Hypertension [Unknown]
  - Weight increased [Unknown]
  - Drug ineffective [Unknown]
